FAERS Safety Report 16662180 (Version 8)
Quarter: 2021Q3

REPORT INFORMATION
  Report Type: Report from Study
  Country: TW (occurrence: TW)
  Receive Date: 20190802
  Receipt Date: 20210701
  Transmission Date: 20211014
  Serious: Yes (Hospitalization, Other)
  Sender: FDA-Public Use
  Company Number: TW-INCYTE CORPORATION-2019IN007680

PATIENT

DRUGS (17)
  1. JAKAVI [Suspect]
     Active Substance: RUXOLITINIB
     Dosage: 40 MG
     Route: 048
     Dates: start: 20190412, end: 20191003
  2. JAKAVI [Suspect]
     Active Substance: RUXOLITINIB
     Dosage: 20 MG
     Route: 048
     Dates: start: 20191004
  3. CEFTRIAXONE. [Concomitant]
     Active Substance: CEFTRIAXONE
     Indication: TUBERCULOSIS
     Dosage: 1 G, Q12H
     Route: 042
     Dates: start: 20181227, end: 20190110
  4. JAKAVI [Suspect]
     Active Substance: RUXOLITINIB
     Indication: MYELOFIBROSIS
     Dosage: 40 MG
     Route: 048
     Dates: start: 20180903, end: 20181213
  5. ALLOPURINOL. [Concomitant]
     Active Substance: ALLOPURINOL
     Indication: PROPHYLAXIS
     Dosage: 100 MG, QD
     Route: 048
     Dates: start: 20150731, end: 20190119
  6. TRAMADOL. [Concomitant]
     Active Substance: TRAMADOL
     Indication: SPLEEN DISORDER
     Dosage: 60 MG
     Route: 048
     Dates: start: 20190104, end: 20190119
  7. ETHAMBUTOL [ETHAMBUTOL DIHYDROCHLORIDE] [Concomitant]
     Active Substance: ETHAMBUTOL HYDROCHLORIDE
     Indication: TUBERCULOSIS
     Dosage: 1200 MG, QD
     Route: 048
     Dates: start: 20190124, end: 20201205
  8. TEICOPLANIN [Concomitant]
     Active Substance: TEICOPLANIN
     Indication: TUBERCULOSIS
     Dosage: 600 MG, QD
     Route: 042
     Dates: start: 20181225, end: 20190101
  9. JAKAVI [Suspect]
     Active Substance: RUXOLITINIB
     Dosage: 60 MG
     Route: 048
     Dates: start: 20181214, end: 20181226
  10. JAKAVI [Suspect]
     Active Substance: RUXOLITINIB
     Dosage: 20 MG
     Route: 048
     Dates: start: 20190215, end: 20190321
  11. FEBUXOSTAT. [Concomitant]
     Active Substance: FEBUXOSTAT
     Indication: PROPHYLAXIS
     Dosage: 80 MG, QD
     Route: 048
     Dates: start: 20190215
  12. RIFATER [Concomitant]
     Active Substance: ISONIAZID\PYRAZINAMIDE\RIFAMPIN
     Indication: TUBERCULOSIS
     Dosage: 5 DF, QD
     Route: 048
     Dates: start: 20190124, end: 20201205
  13. JAKAVI [Suspect]
     Active Substance: RUXOLITINIB
     Dosage: 60 MG
     Route: 048
     Dates: start: 20190322, end: 20190411
  14. ASPIRIN [ACETYLSALICYLIC ACID] [Concomitant]
     Active Substance: ASPIRIN
     Indication: PROPHYLAXIS
     Dosage: 100 MG, QD
     Route: 048
     Dates: start: 20040802, end: 20190804
  15. TAMSULOSIN [Concomitant]
     Active Substance: TAMSULOSIN
     Indication: PROPHYLAXIS
     Dosage: 0.4 MG, HS
     Route: 048
     Dates: start: 20191004
  16. JAKAVI [Suspect]
     Active Substance: RUXOLITINIB
     Dosage: 40 MG
     Route: 048
     Dates: start: 20181227, end: 20190214
  17. ULTRACET [Concomitant]
     Active Substance: ACETAMINOPHEN\TRAMADOL HYDROCHLORIDE
     Indication: SPLEEN DISORDER
     Dosage: 1 DF, Q6H
     Route: 048
     Dates: start: 20181226, end: 20181230

REACTIONS (6)
  - Tinea infection [Not Recovered/Not Resolved]
  - Gastric ulcer [Not Recovered/Not Resolved]
  - Gastric ulcer [Recovered/Resolved]
  - Anaemia [Recovered/Resolved]
  - Gastrointestinal haemorrhage [Recovered/Resolved]
  - Malaise [Recovered/Resolved]

NARRATIVE: CASE EVENT DATE: 20181201
